FAERS Safety Report 7718226-8 (Version None)
Quarter: 2011Q3

REPORT INFORMATION
  Report Type: 
  Country: None (occurrence: None)
  Receive Date: 20110830
  Receipt Date: 20110822
  Transmission Date: 20111222
  Serious: Yes (Other)
  Sender: FDA-Public Use
  Company Number: PHEH2011US02223

PATIENT
  Sex: Female

DRUGS (1)
  1. TOBI [Suspect]
     Indication: BRONCHIECTASIS
     Dosage: 300 MG, BID

REACTIONS (4)
  - PRODUCTIVE COUGH [None]
  - DYSPNOEA [None]
  - ASTHMA [None]
  - PULMONARY HYPERTENSION [None]
